FAERS Safety Report 7449576-0 (Version None)
Quarter: 2011Q2

REPORT INFORMATION
  Report Type: 
  Country: None (occurrence: None)
  Receive Date: 20110502
  Receipt Date: 20110427
  Transmission Date: 20111010
  Serious: Yes (Hospitalization)
  Sender: FDA-Public Use
  Company Number: CH-BAYER-2011-035798

PATIENT
  Age: 66 Year
  Sex: Male

DRUGS (2)
  1. ASPIRIN [Suspect]
     Dosage: 100 MG, QD
     Route: 048
  2. SINTROM [Suspect]
     Dosage: UNK
     Route: 048
     Dates: start: 20000101, end: 20110121

REACTIONS (4)
  - PROTHROMBIN TIME PROLONGED [None]
  - ANAEMIA [None]
  - MELAENA [None]
  - GASTROINTESTINAL HAEMORRHAGE [None]
